FAERS Safety Report 15985792 (Version 3)
Quarter: 2019Q1

REPORT INFORMATION
  Report Type: Spontaneous
  Country: JP (occurrence: JP)
  Receive Date: 20190220
  Receipt Date: 20190306
  Transmission Date: 20190418
  Serious: Yes (Death, Other)
  Sender: FDA-Public Use
  Company Number: JP-ASTRAZENECA-2019SE28040

PATIENT
  Age: 84 Year
  Sex: Female

DRUGS (8)
  1. SHORT ACTING BETA AGONIST [Concomitant]
  2. BISOPROLOL FUMARATE. [Concomitant]
     Active Substance: BISOPROLOL FUMARATE
     Dosage: 1.875MG UNKNOWN
     Dates: start: 20180723
  3. BISOPROLOL FUMARATE. [Concomitant]
     Active Substance: BISOPROLOL FUMARATE
     Dosage: 3.75MG UNKNOWN
     Dates: start: 20181011
  4. BISOPROLOL FUMARATE. [Concomitant]
     Active Substance: BISOPROLOL FUMARATE
     Dosage: 2.5MG UNKNOWN
     Dates: start: 20180823
  5. FASENRA [Suspect]
     Active Substance: BENRALIZUMAB
     Indication: ASTHMA
     Route: 058
     Dates: start: 201810
  6. BISOPROLOL FUMARATE. [Concomitant]
     Active Substance: BISOPROLOL FUMARATE
     Dosage: 1.25MG UNKNOWN
     Dates: start: 20180618
  7. BISOPROLOL FUMARATE. [Concomitant]
     Active Substance: BISOPROLOL FUMARATE
     Dosage: 3.125MG UNKNOWN
     Dates: start: 20180910
  8. DIGOXIN. [Concomitant]
     Active Substance: DIGOXIN
     Dates: start: 20181011

REACTIONS (2)
  - Atrial fibrillation [Fatal]
  - Oedema peripheral [Unknown]

NARRATIVE: CASE EVENT DATE: 201811
